FAERS Safety Report 8777110 (Version 2)
Quarter: 2012Q4

REPORT INFORMATION
  Report Type: Report from Study
  Country: US (occurrence: US)
  Receive Date: 20120911
  Receipt Date: 20120920
  Transmission Date: 20130627
  Serious: Yes (Other)
  Sender: FDA-Public Use
  Company Number: US-US-EMD SERONO, INC.-7159693

PATIENT
  Sex: Female
  Weight: 45 kg

DRUGS (5)
  1. REBIF [Suspect]
     Indication: MULTIPLE SCLEROSIS
     Route: 058
     Dates: start: 20090828
  2. ALEVE [Concomitant]
     Indication: PREMEDICATION
  3. TYLENOL [Concomitant]
     Indication: PREMEDICATION
  4. LORAZEPAM [Concomitant]
     Indication: ANXIETY
  5. NORVASC [Concomitant]
     Indication: HYPERTENSION

REACTIONS (9)
  - Ligament rupture [Unknown]
  - Panic attack [Recovering/Resolving]
  - Injection site scar [Not Recovered/Not Resolved]
  - Lymph node pain [Recovered/Resolved]
  - Weight decreased [Recovering/Resolving]
  - Pyrexia [Unknown]
  - Pain [Unknown]
  - Chills [Unknown]
  - Injection site mass [Not Recovered/Not Resolved]
